FAERS Safety Report 9180495 (Version 1)
Quarter: 2013Q1

REPORT INFORMATION
  Report Type: Spontaneous
  Country: NL (occurrence: NL)
  Receive Date: 20130322
  Receipt Date: 20130322
  Transmission Date: 20140127
  Serious: Yes (Death)
  Sender: FDA-Public Use
  Company Number: NL-MERCK-1303NLD009374

PATIENT
  Age: 26 Year
  Sex: Female

DRUGS (1)
  1. MERCILON [Suspect]
     Indication: MENORRHAGIA
     Dosage: 1 DF, QD
     Route: 048
     Dates: start: 1998

REACTIONS (1)
  - Pulmonary embolism [Fatal]
